FAERS Safety Report 14673910 (Version 1)
Quarter: 2018Q1

REPORT INFORMATION
  Report Type: Other
  Country: None (occurrence: US)
  Receive Date: 20180323
  Receipt Date: 20180323
  Transmission Date: 20180509
  Serious: Yes (Life-Threatening)
  Sender: FDA-Public Use
  Company Number: US-AIR PRODUCTS AND CHEMICALS, INC. -2044398

PATIENT
  Age: 80 Year
  Sex: Male

DRUGS (1)
  1. OXYGEN. [Suspect]
     Active Substance: OXYGEN

REACTIONS (2)
  - Cerebrovascular accident [None]
  - Seizure [None]
